FAERS Safety Report 6529697-7 (Version None)
Quarter: 2010Q1

REPORT INFORMATION
  Report Type: 
  Country: None (occurrence: None)
  Receive Date: 20100107
  Receipt Date: 20091229
  Transmission Date: 20100710
  Serious: Yes (Hospitalization)
  Sender: FDA-Public Use
  Company Number: FR-ELI_LILLY_AND_COMPANY-FR200912005933

PATIENT
  Sex: Female

DRUGS (10)
  1. CYMBALTA [Suspect]
     Dosage: 60 MG, DAILY (1/D)
     Route: 048
     Dates: start: 20090601, end: 20091005
  2. ZYPREXA [Suspect]
     Dosage: 10 MG, 2/D
     Route: 048
     Dates: end: 20091005
  3. APROVEL [Concomitant]
     Dosage: 300 MG, DAILY (1/D)
     Route: 065
  4. LOXEN [Concomitant]
     Dosage: 50 MG, 2/D
     Route: 065
  5. LEVOTHYROXINE SODIUM [Concomitant]
     Dosage: 75 UG, DAILY (1/D)
     Route: 065
  6. XANAX [Concomitant]
     Dosage: 0.5 MG, 4/D
     Route: 065
  7. TERCIAN [Concomitant]
     Dosage: 1.5 D/F, DAILY (1/D)
     Route: 048
     Dates: start: 20090601, end: 20091016
  8. IMOVANE [Concomitant]
     Dosage: UNK, UNKNOWN
     Route: 048
     Dates: start: 20090601, end: 20091005
  9. THERALENE [Concomitant]
     Dosage: 20 D/F, DAILY (1/D)
     Route: 048
     Dates: start: 20090601, end: 20091005
  10. LANTUS [Concomitant]
     Dosage: 36 IU, DAILY (1/D)
     Route: 065

REACTIONS (2)
  - CONSTIPATION [None]
  - PARKINSONISM [None]
